FAERS Safety Report 9120862 (Version 1)
Quarter: 2013Q1

REPORT INFORMATION
  Report Type: Spontaneous
  Country: US (occurrence: US)
  Receive Date: 20130226
  Receipt Date: 20130226
  Transmission Date: 20140127
  Serious: Yes (Hospitalization, Other)
  Sender: FDA-Public Use
  Company Number: US-TEVA-271469USA

PATIENT
  Age: 39 Year
  Sex: Female

DRUGS (1)
  1. VERAPAMIL TABLET 80MG [Suspect]
     Dosage: 240 MILLIGRAM DAILY;

REACTIONS (8)
  - Overdose [Recovered/Resolved]
  - Atrioventricular block second degree [Recovered/Resolved]
  - Hypotension [Recovered/Resolved]
  - Dyspnoea [Recovered/Resolved]
  - Chest discomfort [Recovered/Resolved]
  - Somnolence [Recovered/Resolved]
  - Hyperhidrosis [Recovered/Resolved]
  - Lethargy [Recovered/Resolved]
